FAERS Safety Report 8761919 (Version 1)
Quarter: 2012Q4

REPORT INFORMATION
  Report Type: 
  Country: US (occurrence: US)
  Receive Date: 20120829
  Receipt Date: 20120829
  Transmission Date: 20130627
  Serious: Yes (Other)
  Sender: FDA-Public Use
  Company Number: US-PFIZER INC-2012210909

PATIENT
  Age: 36 Year
  Sex: Female
  Weight: 61.22 kg

DRUGS (6)
  1. GEODON [Suspect]
     Indication: BIPOLAR DISORDER
     Dosage: 80 mg, 2x/day
     Route: 048
     Dates: start: 200910
  2. GEODON [Suspect]
     Dosage: 60 mg, 2x/day
     Route: 048
     Dates: end: 2011
  3. ZIPRASIDONE HYDROCHLORIDE [Suspect]
     Indication: BIPOLAR DISORDER
     Dosage: 40 mg, 2x/day
     Route: 048
     Dates: start: 2011
  4. ZIPRASIDONE HYDROCHLORIDE [Suspect]
     Dosage: UNK
     Route: 048
     Dates: end: 201206
  5. LAMICTAL [Concomitant]
     Dosage: UNK
  6. COGENTIN [Concomitant]
     Indication: MUSCLE RIGIDITY
     Dosage: 1 mg, UNK

REACTIONS (3)
  - Dehydroepiandrosterone test [Unknown]
  - Blood prolactin increased [Unknown]
  - Alopecia [None]
